FAERS Safety Report 5010697-3 (Version None)
Quarter: 2006Q2

REPORT INFORMATION
  Report Type: 
  Country: None (occurrence: None)
  Receive Date: 20060523
  Receipt Date: 20060515
  Transmission Date: 20061013
  Serious: Yes (Other)
  Sender: FDA-Public Use
  Company Number: S06-USA-01684-01

PATIENT
  Sex: Male

DRUGS (2)
  1. LEXAPRO [Suspect]
  2. MULTIPLE MEDICATIONS (NOS) [Concomitant]

REACTIONS (1)
  - HYPERKALAEMIA [None]
